FAERS Safety Report 15604661 (Version 4)
Quarter: 2019Q1

REPORT INFORMATION
  Report Type: Spontaneous
  Country: US (occurrence: US)
  Receive Date: 20181111
  Receipt Date: 20190320
  Transmission Date: 20190417
  Serious: Yes (Hospitalization, Other)
  Sender: FDA-Public Use
  Company Number: US-BIOGEN-2018BI00652701

PATIENT
  Age: 7 Month
  Sex: Male
  Weight: 7.75 kg

DRUGS (7)
  1. MYCOSTATIN [Concomitant]
     Active Substance: NYSTATIN
     Indication: PRODUCT USED FOR UNKNOWN INDICATION
     Dosage: APPLY 1 APPLICATION TOPICALLY AS NEEDED
     Route: 050
     Dates: start: 20181018
  2. TYLENOL [Concomitant]
     Active Substance: ACETAMINOPHEN
     Indication: PRODUCT USED FOR UNKNOWN INDICATION
     Dosage: 4ML BY PER G TUBE ROUTE AS NEEDED UP TO 10 DAYS
     Route: 050
     Dates: start: 20181127, end: 20181207
  3. SPINRAZA [Suspect]
     Active Substance: NUSINERSEN
     Indication: SPINAL MUSCULAR ATROPHY
     Route: 050
     Dates: start: 20180831
  4. AQUAPHOR [Concomitant]
     Active Substance: PETROLATUM
     Indication: PRODUCT USED FOR UNKNOWN INDICATION
     Dosage: APPLY 1 APPLICATION TOPICALLY
     Route: 050
     Dates: start: 20181227
  5. SODIUM CHLORIDE. [Concomitant]
     Active Substance: SODIUM CHLORIDE
     Indication: PRODUCT USED FOR UNKNOWN INDICATION
     Dosage: TAKE 1 AMPULE BY NEBULIZATION AS NEEDED FOR OTHER INCREASED SECRETIONS
     Route: 050
     Dates: start: 20181018
  6. PROVENTIL [Concomitant]
     Active Substance: ALBUTEROL
     Indication: WHEEZING
     Dosage: 2.5 MG/3ML TAKE 3ML BY NEBULIZATION EVERY 4HOURS AS NEEDED
     Route: 050
     Dates: start: 20181226
  7. ENFAMIL [Concomitant]
     Active Substance: AMINO ACIDS\CARBOHYDRATES\MINERALS\VITAMINS
     Indication: PRODUCT USED FOR UNKNOWN INDICATION
     Route: 050

REACTIONS (7)
  - Hypoxia [Unknown]
  - Enterovirus infection [Unknown]
  - Bradycardia [Unknown]
  - Pneumonia bacterial [Recovered/Resolved]
  - Respiratory distress [Unknown]
  - Atelectasis [Unknown]
  - Respiratory syncytial virus infection [Not Recovered/Not Resolved]

NARRATIVE: CASE EVENT DATE: 20181017
